FAERS Safety Report 6992470-X (Version None)
Quarter: 2010Q3

REPORT INFORMATION
  Report Type: 
  Country: None (occurrence: None)
  Receive Date: 20100916
  Receipt Date: 20100916
  Transmission Date: 20110219
  Serious: Yes (Other)
  Sender: FDA-Public Use
  Company Number: None

PATIENT
  Age: 88 Year
  Sex: Female
  Weight: 45.3597 kg

DRUGS (1)
  1. ALENDRONATE SODIUM 35 MG TABLETS TEVA PHARMACEUTICALS [Suspect]
     Indication: OSTEOPOROSIS
     Dosage: 35 MG ONCE/WEEKLY PO
     Route: 048
     Dates: start: 20100824, end: 20100831

REACTIONS (7)
  - ABDOMINAL PAIN [None]
  - BLISTER [None]
  - FATIGUE [None]
  - HYPERAESTHESIA [None]
  - MALAISE [None]
  - PAIN IN EXTREMITY [None]
  - URTICARIA [None]
